FAERS Safety Report 10302845 (Version 1)
Quarter: 2014Q3

REPORT INFORMATION
  Report Type: Spontaneous
  Country: GB (occurrence: GB)
  Receive Date: 20140714
  Receipt Date: 20140714
  Transmission Date: 20150326
  Serious: Yes (Disabling, Other)
  Sender: FDA-Public Use
  Company Number: GB-TEVA-493160ISR

PATIENT
  Age: 85 Year
  Sex: Female
  Weight: 60 kg

DRUGS (5)
  1. LETROZOLE. [Suspect]
     Active Substance: LETROZOLE
     Indication: BREAST CANCER STAGE II
     Dosage: 1 DOSAGE FORMS DAILY;
     Route: 048
     Dates: start: 2011, end: 20140414
  2. TOLTERODINE [Concomitant]
     Active Substance: TOLTERODINE
  3. FLIXOTIDE [Concomitant]
     Active Substance: FLUTICASONE PROPIONATE
  4. QUININE SULPHATE [Concomitant]
     Active Substance: QUININE SULFATE
  5. SEREVENT [Concomitant]
     Active Substance: SALMETEROL XINAFOATE

REACTIONS (4)
  - Pruritus generalised [Recovering/Resolving]
  - Gait disturbance [Unknown]
  - Musculoskeletal pain [Recovered/Resolved]
  - Sleep disorder [Unknown]

NARRATIVE: CASE EVENT DATE: 2012
